FAERS Safety Report 24824316 (Version 1)
Quarter: 2025Q1

REPORT INFORMATION
  Report Type: Spontaneous
  Country: US (occurrence: US)
  Receive Date: 20250109
  Receipt Date: 20250109
  Transmission Date: 20250408
  Serious: No
  Sender: JOHNSON AND JOHNSON
  Company Number: US-VIIV HEALTHCARE-US2024AMR146296

PATIENT
  Sex: Female

DRUGS (2)
  1. RILPIVIRINE [Suspect]
     Active Substance: RILPIVIRINE
     Indication: Product used for unknown indication
     Route: 065
  2. CABOTEGRAVIR [Suspect]
     Active Substance: CABOTEGRAVIR
     Indication: Product used for unknown indication
     Route: 065

REACTIONS (8)
  - Injection site discomfort [Unknown]
  - Injection site warmth [Unknown]
  - Influenza like illness [Unknown]
  - Insomnia [Unknown]
  - Weight increased [Unknown]
  - Injection site induration [Unknown]
  - Pain [Recovered/Resolved]
  - Chills [Recovered/Resolved]
